FAERS Safety Report 24376752 (Version 1)
Quarter: 2024Q3

REPORT INFORMATION
  Report Type: Spontaneous
  Country: US (occurrence: US)
  Receive Date: 20240930
  Receipt Date: 20240930
  Transmission Date: 20241017
  Serious: Yes (Other)
  Sender: DR REDDYS
  Company Number: US-DRL-USA-LIT/USA/24/0014158

PATIENT
  Age: 40 Year
  Sex: Female

DRUGS (5)
  1. CETIRIZINE [Suspect]
     Active Substance: CETIRIZINE HYDROCHLORIDE
     Indication: Pruritus
  2. HYDROXYZINE [Concomitant]
     Active Substance: HYDROXYZINE HYDROCHLORIDE
     Indication: Pruritus
  3. MOMETASONE [Concomitant]
     Active Substance: MOMETASONE
     Indication: Pruritus
     Route: 061
  4. PAROXETINE [Concomitant]
     Active Substance: PAROXETINE
     Indication: Pruritus
  5. SARNA [Concomitant]
     Active Substance: CAMPHOR (SYNTHETIC)\MENTHOL
     Indication: Pruritus
     Route: 061

REACTIONS (1)
  - Drug ineffective for unapproved indication [Unknown]
